FAERS Safety Report 9641902 (Version 1)
Quarter: 2013Q4

REPORT INFORMATION
  Report Type: Spontaneous
  Country: US (occurrence: DE)
  Receive Date: 20131023
  Receipt Date: 20131023
  Transmission Date: 20140711
  Serious: Yes (Other)
  Sender: FDA-Public Use
  Company Number: DE-FRI-1000050478

PATIENT
  Age: 69 Year
  Sex: Female

DRUGS (1)
  1. LINACLOTIDE [Suspect]
     Dates: start: 201309

REACTIONS (2)
  - Diarrhoea [Not Recovered/Not Resolved]
  - Pain [Not Recovered/Not Resolved]
